FAERS Safety Report 23843147 (Version 2)
Quarter: 2024Q2

REPORT INFORMATION
  Report Type: Spontaneous
  Country: BR (occurrence: BR)
  Receive Date: 20240510
  Receipt Date: 20240515
  Transmission Date: 20240715
  Serious: Yes (Other)
  Sender: FDA-Public Use
  Company Number: BR-BRISTOL-MYERS SQUIBB COMPANY-2024-072410

PATIENT
  Sex: Male

DRUGS (1)
  1. ELIQUIS [Suspect]
     Active Substance: APIXABAN
     Indication: Product used for unknown indication
     Dosage: 1 TABLET IN THE MORNING AND 1 AT NIGHT?2.5MG X 60 FILM-COATED TABLET.
     Route: 048

REACTIONS (5)
  - Coronary artery disease [Unknown]
  - Breast disorder [Unknown]
  - Renal disorder [Unknown]
  - Lung neoplasm malignant [Unknown]
  - Inability to afford medication [Unknown]
